FAERS Safety Report 4324377-0 (Version None)
Quarter: 2004Q1

REPORT INFORMATION
  Report Type: 
  Country: None (occurrence: None)
  Receive Date: 20040326
  Receipt Date: 20040205
  Transmission Date: 20041129
  Serious: No
  Sender: FDA-Public Use
  Company Number: US-GLAXOSMITHKLINE-A0496768A

PATIENT
  Age: 45 Year
  Sex: Female

DRUGS (7)
  1. ADVAIR DISKUS 100/50 [Suspect]
     Indication: ASTHMA
     Dosage: 1MCG TWICE PER DAY
     Route: 055
  2. SINGULAIR [Concomitant]
  3. ACCUPRIL [Concomitant]
     Route: 065
  4. PRAVACHOL [Concomitant]
  5. CELEBREX [Concomitant]
  6. ALLEGRA [Concomitant]
  7. BECONASE NASAL [Concomitant]

REACTIONS (1)
  - ORAL CANDIDIASIS [None]
